FAERS Safety Report 14161489 (Version 2)
Quarter: 2018Q2

REPORT INFORMATION
  Report Type: Spontaneous
  Country: US (occurrence: US)
  Receive Date: 20171106
  Receipt Date: 20180511
  Transmission Date: 20180711
  Serious: No
  Sender: FDA-Public Use
  Company Number: US-PFIZER INC-2017473375

PATIENT
  Age: 76 Year
  Sex: Female

DRUGS (10)
  1. PARAPLATIN [Suspect]
     Active Substance: CARBOPLATIN
     Dosage: UNK
  2. LEVOTHYROXINE. [Suspect]
     Active Substance: LEVOTHYROXINE
     Dosage: UNK
  3. CALCIUM [Suspect]
     Active Substance: CALCIUM
     Dosage: UNK
  4. VITAMIN D [Suspect]
     Active Substance: CHOLECALCIFEROL
     Dosage: UNK
  5. DOCETAXEL. [Suspect]
     Active Substance: DOCETAXEL
     Indication: BREAST CANCER
     Dosage: 129 MG, EVERY THREE WEEKS (6 CYCLES)
     Dates: start: 20140926, end: 20150119
  6. TAXOTERE [Suspect]
     Active Substance: DOCETAXEL
     Dosage: UNK
     Dates: start: 20140926, end: 20150119
  7. AMLODIPINE [Suspect]
     Active Substance: AMLODIPINE BESYLATE
     Dosage: UNK
  8. LIDOCAINE. [Suspect]
     Active Substance: LIDOCAINE
     Dosage: UNK
  9. QUINAPRIL. [Suspect]
     Active Substance: QUINAPRIL
     Dosage: UNK
  10. SIMVASTATIN. [Suspect]
     Active Substance: SIMVASTATIN
     Dosage: UNK

REACTIONS (5)
  - Madarosis [Not Recovered/Not Resolved]
  - Hair colour changes [Not Recovered/Not Resolved]
  - Alopecia [Not Recovered/Not Resolved]
  - Hair disorder [Not Recovered/Not Resolved]
  - Hair texture abnormal [Not Recovered/Not Resolved]

NARRATIVE: CASE EVENT DATE: 2014
